FAERS Safety Report 9831415 (Version 1)
Quarter: 2014Q1

REPORT INFORMATION
  Report Type: Spontaneous
  Country: FR (occurrence: FR)
  Receive Date: 20140121
  Receipt Date: 20140121
  Transmission Date: 20141002
  Serious: Yes (Hospitalization)
  Sender: FDA-Public Use
  Company Number: FR-BRISTOL-MYERS SQUIBB COMPANY-20027611

PATIENT
  Age: 66 Year
  Sex: Male

DRUGS (5)
  1. BARACLUDE [Suspect]
     Indication: HEPATITIS B
     Route: 048
     Dates: start: 201305
  2. LASIX [Concomitant]
  3. ALDACTONE [Concomitant]
  4. LERCAN [Concomitant]
  5. EUPANTOL [Concomitant]

REACTIONS (1)
  - Ascites [Recovering/Resolving]
